FAERS Safety Report 8995151 (Version 1)
Quarter: 2012Q4

REPORT INFORMATION
  Report Type: Spontaneous
  Country: US (occurrence: None)
  Receive Date: 20121228
  Receipt Date: 20121228
  Transmission Date: 20130627
  Serious: Yes (Hospitalization, Other)
  Sender: FDA-Public Use
  Company Number: None

PATIENT
  Age: 48 Year
  Sex: Female
  Weight: 89.1 kg

DRUGS (3)
  1. LEVOFLOXACIN [Suspect]
     Indication: BRONCHITIS
     Route: 048
     Dates: start: 20121209, end: 20121212
  2. LAMOTRIGINE [Suspect]
     Indication: BIPOLAR AFFECTIVE DISORDER, MIXED
     Dates: start: 20121127, end: 20121213
  3. LAMOTRIGINE [Suspect]
     Indication: SCHIZOAFFECTIVE DISORDER
     Dates: start: 20121127, end: 20121213

REACTIONS (2)
  - Anaphylactic reaction [None]
  - Stevens-Johnson syndrome [None]
